FAERS Safety Report 5324103-2 (Version None)
Quarter: 2007Q2

REPORT INFORMATION
  Report Type: 
  Country: None (occurrence: None)
  Receive Date: 20070514
  Receipt Date: 20060502
  Transmission Date: 20071010
  Serious: No
  Sender: FDA-Public Use
  Company Number: A0604051A

PATIENT
  Age: 55 Year
  Sex: Female

DRUGS (3)
  1. NABUMETONE [Suspect]
     Indication: INTERVERTEBRAL DISC DISORDER
     Route: 048
     Dates: start: 20060301
  2. HYDROCHLOROTHIAZIDE [Concomitant]
  3. VITAMINS [Concomitant]

REACTIONS (2)
  - DRUG INEFFECTIVE [None]
  - PAIN [None]
